FAERS Safety Report 25595673 (Version 1)
Quarter: 2025Q3

REPORT INFORMATION
  Report Type: Spontaneous
  Country: EU (occurrence: EU)
  Receive Date: 20250723
  Receipt Date: 20250723
  Transmission Date: 20251020
  Serious: Yes (Life-Threatening, Hospitalization, Other)
  Sender: CHEPLAPHARM
  Company Number: None

PATIENT
  Age: 51 Year
  Sex: Female

DRUGS (8)
  1. QUETIAPINE [Suspect]
     Active Substance: QUETIAPINE
     Indication: Bipolar disorder
     Route: 048
     Dates: start: 20250412, end: 20250426
  2. CLOMETHIAZOLE [Suspect]
     Active Substance: CLOMETHIAZOLE
     Indication: Bipolar disorder
     Route: 048
     Dates: start: 202502, end: 20250426
  3. ZONISAMIDE [Suspect]
     Active Substance: ZONISAMIDE
     Route: 048
     Dates: start: 20250412, end: 20250426
  4. ARIPIPRAZOLE [Suspect]
     Active Substance: ARIPIPRAZOLE
     Route: 048
     Dates: start: 20250412, end: 20250426
  5. TOPIRAMATE [Suspect]
     Active Substance: TOPIRAMATE
     Route: 048
     Dates: start: 20250412, end: 20250426
  6. LORMETAZEPAM [Suspect]
     Active Substance: LORMETAZEPAM
     Route: 048
     Dates: start: 20250214, end: 20250426
  7. BIPERIDEN [Suspect]
     Active Substance: BIPERIDEN
  8. LYRICA [Suspect]
     Active Substance: PREGABALIN

REACTIONS (6)
  - Neuroleptic malignant syndrome [Recovered/Resolved]
  - Acute kidney injury [Recovered/Resolved]
  - Melaena [Unknown]
  - Duodenal ulcer [Unknown]
  - Anaemia [Unknown]
  - Product use in unapproved indication [Recovered/Resolved]

NARRATIVE: CASE EVENT DATE: 20250201
